FAERS Safety Report 12726457 (Version 1)
Quarter: 2016Q3

REPORT INFORMATION
  Report Type: Spontaneous
  Country: US (occurrence: SE)
  Receive Date: 20160908
  Receipt Date: 20160908
  Transmission Date: 20161109
  Serious: Yes (Hospitalization)
  Sender: FDA-Public Use
  Company Number: SE-FRI-1000087378

PATIENT
  Age: 17 Year
  Sex: Female

DRUGS (1)
  1. LINACLOTIDE [Suspect]
     Active Substance: LINACLOTIDE

REACTIONS (4)
  - Constipation [Unknown]
  - Pain [Unknown]
  - Off label use [Unknown]
  - Diarrhoea [Unknown]
